FAERS Safety Report 7431967-5 (Version None)
Quarter: 2011Q2

REPORT INFORMATION
  Report Type: 
  Country: None (occurrence: None)
  Receive Date: 20110422
  Receipt Date: 20110415
  Transmission Date: 20111010
  Serious: Yes (Death, Other)
  Sender: FDA-Public Use
  Company Number: IR-GENZYME-THYM-1002420

PATIENT
  Age: 8 Month
  Sex: Male

DRUGS (4)
  1. BUSULFAN [Concomitant]
     Indication: BONE MARROW CONDITIONING REGIMEN
     Dosage: 16 MG/KG, UNK
  2. CYTARABINE [Concomitant]
     Indication: BONE MARROW CONDITIONING REGIMEN
     Dosage: 200 MG/KG, UNK
  3. THYMOGLOBULIN [Suspect]
     Indication: BONE MARROW CONDITIONING REGIMEN
     Route: 042
  4. CYCLOSPORINE [Concomitant]
     Indication: PROPHYLAXIS AGAINST GRAFT VERSUS HOST DISEASE

REACTIONS (2)
  - ACUTE GRAFT VERSUS HOST DISEASE [None]
  - DEATH [None]
